FAERS Safety Report 17005784 (Version 1)
Quarter: 2019Q4

REPORT INFORMATION
  Report Type: Spontaneous
  Country: US (occurrence: US)
  Receive Date: 20191107
  Receipt Date: 20191107
  Transmission Date: 20200122
  Serious: No
  Sender: FDA-Public Use
  Company Number: US-TEVA-2019-US-1132323

PATIENT
  Age: 57 Year
  Sex: Female
  Weight: 70 kg

DRUGS (10)
  1. METOPROLOL XL [Concomitant]
     Active Substance: METOPROLOL SUCCINATE
  2. FLUTICASONE W/SALMETEROL [Suspect]
     Active Substance: FLUTICASONE PROPIONATE\SALMETEROL XINAFOATE
     Indication: WHEEZING
     Dosage: FORM STRENGTH: 113/14 MCG?DOSE: 1 PUFF TWICE DAILY
     Route: 065
     Dates: start: 201901
  3. CALCIUM [Concomitant]
     Active Substance: CALCIUM
  4. VITAMIN C [Concomitant]
     Active Substance: ASCORBIC ACID
  5. SIMVASTATIN. [Concomitant]
     Active Substance: SIMVASTATIN
  6. FLUTICASONE W/SALMETEROL [Suspect]
     Active Substance: FLUTICASONE PROPIONATE\SALMETEROL XINAFOATE
     Indication: DYSPNOEA
     Dosage: FORM STRENGTH: 232/14MCG
     Route: 065
     Dates: start: 201901
  7. ADVAIR HFA [Concomitant]
     Active Substance: FLUTICASONE PROPIONATE\SALMETEROL XINAFOATE
  8. VITAMIN D [Concomitant]
     Active Substance: VITAMIN D NOS
  9. NASONEX [Concomitant]
     Active Substance: MOMETASONE FUROATE
  10. XANAX [Concomitant]
     Active Substance: ALPRAZOLAM

REACTIONS (8)
  - Pharyngeal erythema [Unknown]
  - Vitamin D decreased [Unknown]
  - Palatal swelling [Unknown]
  - Oropharyngeal pain [Unknown]
  - Product prescribing error [Unknown]
  - Feeling abnormal [Unknown]
  - Platelet count decreased [Unknown]
  - Coating in mouth [Unknown]

NARRATIVE: CASE EVENT DATE: 201901
